FAERS Safety Report 5046523-6 (Version None)
Quarter: 2006Q3

REPORT INFORMATION
  Report Type: 
  Country: None (occurrence: None)
  Receive Date: 20060706
  Receipt Date: 20060706
  Transmission Date: 20061208
  Serious: Yes (Other)
  Sender: FDA-Public Use
  Company Number: None

PATIENT
  Age: 26 Year
  Sex: Male
  Weight: 99.7913 kg

DRUGS (1)
  1. ROBOTUSSIN DX [Suspect]
     Indication: DEPENDENCE
     Dosage: WHOLE BOTTLE EVERY OTHER DAY PO
     Route: 048

REACTIONS (9)
  - AGGRESSION [None]
  - BRAIN DAMAGE [None]
  - DELUSION [None]
  - DRUG DEPENDENCE [None]
  - HALLUCINATION [None]
  - HEART RATE INCREASED [None]
  - INSOMNIA [None]
  - MOOD SWINGS [None]
  - PHARMACEUTICAL PRODUCT COMPLAINT [None]
